FAERS Safety Report 9526389 (Version 1)
Quarter: 2013Q3

REPORT INFORMATION
  Report Type: Spontaneous
  Country: US (occurrence: US)
  Receive Date: 20130916
  Receipt Date: 20130916
  Transmission Date: 20140515
  Serious: Yes (Other)
  Sender: FDA-Public Use
  Company Number: US-ELI_LILLY_AND_COMPANY-US201309003744

PATIENT
  Age: 35 Year
  Sex: Male

DRUGS (1)
  1. CIALIS [Suspect]
     Indication: ERECTILE DYSFUNCTION
     Dosage: 20 MG, PRN
     Dates: end: 20130907

REACTIONS (3)
  - Blindness [Not Recovered/Not Resolved]
  - Photophobia [Not Recovered/Not Resolved]
  - Nightmare [Unknown]
